FAERS Safety Report 20077557 (Version 1)
Quarter: 2021Q4

REPORT INFORMATION
  Report Type: Spontaneous
  Country: US (occurrence: US)
  Receive Date: 20211116
  Receipt Date: 20211116
  Transmission Date: 20220303
  Serious: Yes (Life-Threatening, Hospitalization)
  Sender: FDA-Public Use
  Company Number: US-BIOMARINAP-US-2021-139635

PATIENT
  Age: 41 Year
  Sex: Male

DRUGS (1)
  1. PALYNZIQ [Suspect]
     Active Substance: PEGVALIASE-PQPZ
     Indication: Phenylketonuria
     Dosage: UNK
     Route: 058
     Dates: start: 20201017, end: 20210830

REACTIONS (5)
  - Flushing [Unknown]
  - Myalgia [Unknown]
  - Headache [Unknown]
  - Injection site pruritus [Unknown]
  - Back pain [Unknown]

NARRATIVE: CASE EVENT DATE: 20210830
